FAERS Safety Report 11825587 (Version 4)
Quarter: 2016Q4

REPORT INFORMATION
  Report Type: Spontaneous
  Country: US (occurrence: US)
  Receive Date: 20151211
  Receipt Date: 20161215
  Transmission Date: 20170206
  Serious: Yes (Other)
  Sender: FDA-Public Use
  Company Number: US-JNJFOC-20150716884

PATIENT
  Age: 73 Year
  Sex: Female

DRUGS (20)
  1. TORADOL [Concomitant]
     Active Substance: KETOROLAC TROMETHAMINE
  2. AMLODIPINE [Concomitant]
     Active Substance: AMLODIPINE BESYLATE
  3. ASPIRIN. [Concomitant]
     Active Substance: ASPIRIN
  4. VALACYCLOVIR [Concomitant]
     Active Substance: VALACYCLOVIR HYDROCHLORIDE
  5. LISINOPRIL. [Concomitant]
     Active Substance: LISINOPRIL
  6. GABAPENTIN. [Concomitant]
     Active Substance: GABAPENTIN
  7. OXYCODONE [Concomitant]
     Active Substance: OXYCODONE
  8. PEPCID [Concomitant]
     Active Substance: FAMOTIDINE
  9. PROTONIX [Concomitant]
     Active Substance: PANTOPRAZOLE SODIUM
  10. LYRICA [Concomitant]
     Active Substance: PREGABALIN
  11. PANTOPRAZOLE [Concomitant]
     Active Substance: PANTOPRAZOLE SODIUM
  12. LYSINE [Concomitant]
     Active Substance: LYSINE
  13. MELOXICAM. [Concomitant]
     Active Substance: MELOXICAM
  14. IMBRUVICA [Suspect]
     Active Substance: IBRUTINIB
     Indication: CHRONIC LYMPHOCYTIC LEUKAEMIA
     Route: 048
     Dates: start: 20140815
  15. LORATADINE. [Concomitant]
     Active Substance: LORATADINE
  16. VALTREX [Concomitant]
     Active Substance: VALACYCLOVIR HYDROCHLORIDE
  17. MAGNESIUM [Concomitant]
     Active Substance: MAGNESIUM
  18. PEPTO-BISMOL [Concomitant]
     Active Substance: BISMUTH SUBSALICYLATE
  19. VITAMIN D [Concomitant]
     Active Substance: CHOLECALCIFEROL
  20. ATENOLOL. [Concomitant]
     Active Substance: ATENOLOL

REACTIONS (22)
  - Pelvic deformity [Unknown]
  - Muscle spasms [Unknown]
  - Nasopharyngitis [Unknown]
  - Diarrhoea [Unknown]
  - Myalgia [Unknown]
  - Neuralgia [Unknown]
  - Haematochezia [Unknown]
  - Gastrooesophageal reflux disease [Not Recovered/Not Resolved]
  - Nausea [Unknown]
  - Haemorrhoids [Unknown]
  - Pain in extremity [Not Recovered/Not Resolved]
  - Dizziness [Unknown]
  - Paraesthesia [Unknown]
  - Cough [Unknown]
  - Hip arthroplasty [Unknown]
  - Sciatica [Not Recovered/Not Resolved]
  - Nerve compression [Unknown]
  - Muscle strain [Unknown]
  - Groin pain [Not Recovered/Not Resolved]
  - Intervertebral disc protrusion [Unknown]
  - Pelvic pain [Not Recovered/Not Resolved]
  - Gait disturbance [Not Recovered/Not Resolved]

NARRATIVE: CASE EVENT DATE: 201502
